FAERS Safety Report 13406682 (Version 1)
Quarter: 2017Q2

REPORT INFORMATION
  Report Type: Spontaneous
  Country: AU (occurrence: AU)
  Receive Date: 20170405
  Receipt Date: 20170405
  Transmission Date: 20170830
  Serious: Yes (Other)
  Sender: FDA-Public Use
  Company Number: AU-009507513-1703AUS013777

PATIENT
  Age: 60 Year
  Sex: Male
  Weight: 109 kg

DRUGS (2)
  1. SERETIDE [Concomitant]
     Active Substance: FLUTICASONE PROPIONATE\SALMETEROL XINAFOATE
  2. EZETROL [Suspect]
     Active Substance: EZETIMIBE
     Dosage: 10 MG, QD
     Dates: start: 20161004

REACTIONS (1)
  - Emotional distress [Not Recovered/Not Resolved]

NARRATIVE: CASE EVENT DATE: 20161008
